FAERS Safety Report 10266082 (Version 1)
Quarter: 2014Q2

REPORT INFORMATION
  Report Type: Report from Study
  Country: US (occurrence: US)
  Receive Date: 20140627
  Receipt Date: 20140627
  Transmission Date: 20141212
  Serious: Yes (Other)
  Sender: FDA-Public Use
  Company Number: US-ABBVIE-14P-163-1250253-00

PATIENT
  Sex: Male

DRUGS (13)
  1. HUMIRA [Suspect]
     Indication: COLITIS ULCERATIVE
     Dates: start: 20140501, end: 20140501
  2. HUMIRA [Suspect]
     Dates: start: 20140515, end: 20140515
  3. HUMIRA [Suspect]
     Dates: start: 20140529
  4. QUINAPRIL [Concomitant]
     Indication: PRODUCT USED FOR UNKNOWN INDICATION
     Dosage: QD
  5. TORSEMIDE [Concomitant]
     Indication: PRODUCT USED FOR UNKNOWN INDICATION
     Dosage: QD
  6. METOPROLOL TARTRATE [Concomitant]
     Indication: PRODUCT USED FOR UNKNOWN INDICATION
     Dosage: BID
  7. TESTOSTERONE [Concomitant]
     Indication: OSTEOPOROSIS
     Dosage: APPLIED DAILY/TO BUILD UP BONES
  8. BUDESONIDE [Concomitant]
     Indication: PRODUCT USED FOR UNKNOWN INDICATION
     Dosage: QD (TO DISCONTIUE AFTER LAST 9 DOSES ARE COMPLETED)
  9. MORPHINE SULFATE [Concomitant]
     Indication: BACK PAIN
  10. OXYCODONE [Concomitant]
     Indication: BACK PAIN
  11. CALCIUM [Concomitant]
     Indication: MINERAL SUPPLEMENTATION
  12. VITAMIN D [Concomitant]
     Indication: VITAMIN SUPPLEMENTATION
  13. VITAMIN B12 [Concomitant]
     Indication: VITAMIN SUPPLEMENTATION

REACTIONS (1)
  - Surgical failure [Not Recovered/Not Resolved]
